FAERS Safety Report 17717327 (Version 2)
Quarter: 2020Q2

REPORT INFORMATION
  Report Type: Spontaneous
  Country: DE (occurrence: DE)
  Receive Date: 20200428
  Receipt Date: 20200608
  Transmission Date: 20200714
  Serious: Yes (Other)
  Sender: FDA-Public Use
  Company Number: NVSC2020DE112098

PATIENT
  Age: 44 Year
  Sex: Female

DRUGS (1)
  1. ERELZI [Suspect]
     Active Substance: ETANERCEPT-SZZS
     Indication: PSORIATIC ARTHROPATHY
     Dosage: UNK UNK, Q2W
     Route: 065

REACTIONS (4)
  - Acne [Unknown]
  - Rash [Unknown]
  - Stress fracture [Unknown]
  - Pruritus [Unknown]

NARRATIVE: CASE EVENT DATE: 2019
